FAERS Safety Report 23650360 (Version 1)
Quarter: 2024Q1

REPORT INFORMATION
  Report Type: Spontaneous
  Country: US (occurrence: US)
  Receive Date: 20240320
  Receipt Date: 20240320
  Transmission Date: 20240410
  Serious: Yes (Other)
  Sender: FDA-Public Use
  Company Number: US-BAXTER-2024BAX014791

PATIENT
  Age: 65 Year
  Sex: Male

DRUGS (13)
  1. FLUCONAZOLE [Suspect]
     Active Substance: FLUCONAZOLE
     Indication: Antifungal treatment
     Dosage: UNK
     Route: 042
     Dates: start: 20220701, end: 20220704
  2. NEXTERONE [Suspect]
     Active Substance: AMIODARONE HYDROCHLORIDE
     Indication: Atrial fibrillation
     Dosage: UNK
     Route: 042
     Dates: start: 20220627
  3. NEXTERONE [Suspect]
     Active Substance: AMIODARONE HYDROCHLORIDE
     Indication: Haemodynamic instability
  4. DOXORUBICIN [Suspect]
     Active Substance: DOXORUBICIN
     Indication: Sarcoma
     Dosage: TOTAL CUMULATIVE DOSE OF 150 MG/M2 (NEOADJUVANT CHEMOTHERAPY)
     Route: 065
  5. DOXORUBICIN [Suspect]
     Active Substance: DOXORUBICIN
     Indication: Disease recurrence
  6. IFOSFAMIDE [Concomitant]
     Active Substance: IFOSFAMIDE
     Indication: Sarcoma
     Dosage: NEOADJUVANT CHEMOTHERAPY
     Route: 065
  7. IFOSFAMIDE [Concomitant]
     Active Substance: IFOSFAMIDE
     Indication: Disease recurrence
  8. COLCHICINE [Concomitant]
     Active Substance: COLCHICINE
     Indication: Radiation pericarditis
     Dosage: UNK
     Route: 065
     Dates: start: 20220626
  9. IBUPROFEN [Concomitant]
     Active Substance: IBUPROFEN
     Indication: Radiation pericarditis
     Dosage: HIGH-DOSE (NON-STEROIDAL ANTI-INFLAMMATORY DRUG (NSAID))
     Route: 065
     Dates: start: 20220626, end: 20220627
  10. PREDNISONE [Concomitant]
     Active Substance: PREDNISONE
     Indication: Radiation pericarditis
     Dosage: UNK
     Route: 048
     Dates: start: 20220627, end: 20220630
  11. VANCOMYCIN [Concomitant]
     Active Substance: VANCOMYCIN
     Indication: Antibiotic therapy
     Dosage: UNK
     Route: 042
     Dates: start: 20220630, end: 20220701
  12. CEFTRIAXONE [Concomitant]
     Active Substance: CEFTRIAXONE\CEFTRIAXONE SODIUM
     Indication: Antibiotic therapy
     Dosage: UNK
     Route: 042
     Dates: start: 20220630, end: 20220701
  13. PIPERACILLIN AND TAZOBACTAM [Concomitant]
     Active Substance: PIPERACILLIN SODIUM\TAZOBACTAM SODIUM
     Indication: Antibiotic therapy
     Dosage: UNK
     Route: 042
     Dates: start: 20220701

REACTIONS (1)
  - Electrocardiogram QT prolonged [Unknown]
